FAERS Safety Report 6153952-6 (Version None)
Quarter: 2009Q2

REPORT INFORMATION
  Report Type: 
  Country: None (occurrence: None)
  Receive Date: 20090414
  Receipt Date: 20090403
  Transmission Date: 20091009
  Serious: Yes (Death, Hospitalization)
  Sender: FDA-Public Use
  Company Number: US-BIOGENIDEC-2008BI004073

PATIENT
  Age: 52 Year
  Sex: Male
  Weight: 54 kg

DRUGS (11)
  1. AVONEX [Suspect]
     Indication: MULTIPLE SCLEROSIS
     Route: 030
     Dates: start: 20031217, end: 20081001
  2. CELEXA [Concomitant]
     Indication: DRUG USE FOR UNKNOWN INDICATION
  3. POLYGLYCOL [POLYETHYLENE GLYCOL] [Concomitant]
     Indication: DRUG USE FOR UNKNOWN INDICATION
  4. PEPCID [Concomitant]
     Indication: DRUG USE FOR UNKNOWN INDICATION
  5. DOXAZOSIN MESYLATE [Concomitant]
     Indication: DRUG USE FOR UNKNOWN INDICATION
  6. REMERON [Concomitant]
     Indication: DRUG USE FOR UNKNOWN INDICATION
  7. LORAZEPAM [Concomitant]
     Indication: DRUG USE FOR UNKNOWN INDICATION
  8. AMITRIPTYLINE HCL [Concomitant]
     Indication: DRUG USE FOR UNKNOWN INDICATION
  9. BACLOFEN [Concomitant]
     Indication: DRUG USE FOR UNKNOWN INDICATION
  10. PROVIGIL [Concomitant]
     Indication: DRUG USE FOR UNKNOWN INDICATION
  11. MEGACE [Concomitant]
     Indication: DRUG USE FOR UNKNOWN INDICATION

REACTIONS (6)
  - ABDOMINAL PAIN [None]
  - BONE CANCER METASTATIC [None]
  - COLORECTAL CANCER METASTATIC [None]
  - DIARRHOEA [None]
  - SPINAL CORD INJURY [None]
  - STAPHYLOCOCCAL INFECTION [None]
